FAERS Safety Report 4299245-3 (Version None)
Quarter: 2004Q1

REPORT INFORMATION
  Report Type: 
  Country: None (occurrence: None)
  Receive Date: 20040217
  Receipt Date: 20410129
  Transmission Date: 20041129
  Serious: Yes (Hospitalization)
  Sender: FDA-Public Use
  Company Number: 191602

PATIENT
  Age: 61 Year
  Sex: Female
  Weight: 58.9676 kg

DRUGS (5)
  1. AVONEX [Suspect]
     Indication: MULTIPLE SCLEROSIS
     Dosage: 30 MCG QW IM
     Route: 030
  2. AVONEX [Suspect]
     Indication: MULTIPLE SCLEROSIS
     Dosage: 30 MCG QW IM
     Route: 030
  3. COUMADIN [Concomitant]
  4. BACLOFEN [Concomitant]
  5. MEDICATION (NOS) [Concomitant]

REACTIONS (5)
  - ASTHENIA [None]
  - FALL [None]
  - PAIN IN EXTREMITY [None]
  - PNEUMONIA [None]
  - VAGINAL HAEMORRHAGE [None]
